FAERS Safety Report 17427415 (Version 2)
Quarter: 2020Q1

REPORT INFORMATION
  Report Type: Spontaneous
  Country: IT (occurrence: IT)
  Receive Date: 20200218
  Receipt Date: 20200326
  Transmission Date: 20200409
  Serious: Yes (Life-Threatening, Hospitalization, Other)
  Sender: FDA-Public Use
  Company Number: IT-ACCORD-172764

PATIENT
  Age: 49 Year
  Sex: Female

DRUGS (4)
  1. TRAMADOL. [Suspect]
     Active Substance: TRAMADOL
     Indication: PRODUCT USED FOR UNKNOWN INDICATION
     Dosage: MANY EMPTY PACKAGES (TOTAL DOSAGE OF 6 G)
  2. QUETIAPINE. [Suspect]
     Active Substance: QUETIAPINE
     Indication: PRODUCT USED FOR UNKNOWN INDICATION
  3. PREGABALIN. [Concomitant]
     Active Substance: PREGABALIN
     Indication: SEIZURE
  4. VALPROIC ACID. [Concomitant]
     Active Substance: VALPROIC ACID
     Indication: SEIZURE

REACTIONS (11)
  - Mitral valve incompetence [Recovering/Resolving]
  - Acidosis [Recovering/Resolving]
  - Multiple organ dysfunction syndrome [Recovering/Resolving]
  - Shock [Recovering/Resolving]
  - Metabolic encephalopathy [Recovered/Resolved]
  - Loss of consciousness [Recovering/Resolving]
  - Intentional overdose [Unknown]
  - Acute kidney injury [Recovering/Resolving]
  - Hepatic failure [Recovering/Resolving]
  - Dilatation ventricular [Recovering/Resolving]
  - Mydriasis [Recovering/Resolving]
